FAERS Safety Report 5138634-1 (Version None)
Quarter: 2006Q4

REPORT INFORMATION
  Report Type: 
  Country: None (occurrence: None)
  Receive Date: 20061030
  Receipt Date: 20061019
  Transmission Date: 20070319
  Serious: Yes (Other)
  Sender: FDA-Public Use
  Company Number: US-GLAXOSMITHKLINE-B0443872A

PATIENT

DRUGS (1)
  1. AMOXICILLIN /CLAVULANIC ACID [Suspect]
     Indication: BRONCHITIS ACUTE
     Route: 048

REACTIONS (1)
  - DEPRESSION [None]
